FAERS Safety Report 6931507-0 (Version None)
Quarter: 2010Q3

REPORT INFORMATION
  Report Type: 
  Country: None (occurrence: None)
  Receive Date: 20100819
  Receipt Date: 20100607
  Transmission Date: 20110219
  Serious: Yes (Other)
  Sender: FDA-Public Use
  Company Number: US-ENDO PHARMACEUTICALS INC.-OPER20100087

PATIENT
  Sex: Male
  Weight: 70.824 kg

DRUGS (7)
  1. OPANA ER [Suspect]
     Indication: BACK PAIN
     Dosage: 40 MG Q12H
     Dates: end: 20091002
  2. OPANA ER [Suspect]
     Dosage: 40 MG Q12H
     Route: 065
     Dates: start: 20081001
  3. VICODIN ES [Suspect]
     Indication: BACK PAIN
     Dosage: ^BID^
     Route: 065
     Dates: start: 20081001, end: 20091002
  4. DIAZEPAM [Concomitant]
     Indication: MUSCLE SPASMS
     Dosage: 5 MG, ONE A.M., 2 HS
     Route: 065
     Dates: start: 20031104, end: 20091002
  5. TRAZODONE HCL [Concomitant]
     Indication: INSOMNIA
     Dosage: 50 MG HS
     Dates: start: 20060720, end: 20091002
  6. TRICOR [Concomitant]
     Indication: HYPERLIPIDAEMIA
     Dosage: 40 MG DAILY
     Route: 065
     Dates: start: 20060711, end: 20091002
  7. IBUPROFEN [Concomitant]
     Dosage: 800 MG TID
     Route: 065
     Dates: start: 20031104, end: 20091002

REACTIONS (3)
  - DRUG ABUSE [None]
  - INCORRECT ROUTE OF DRUG ADMINISTRATION [None]
  - WRONG TECHNIQUE IN DRUG USAGE PROCESS [None]
